FAERS Safety Report 8061788-4 (Version None)
Quarter: 2012Q1

REPORT INFORMATION
  Report Type: 
  Country: None (occurrence: None)
  Receive Date: 20120123
  Receipt Date: 20120112
  Transmission Date: 20120608
  Serious: No
  Sender: FDA-Public Use
  Company Number: US-BIOGENIDEC-2012BI002448

PATIENT
  Sex: Female

DRUGS (4)
  1. SOLU-MEDROL [Concomitant]
  2. AVONEX [Suspect]
     Indication: MULTIPLE SCLEROSIS
     Route: 030
     Dates: start: 19910601, end: 20110525
  3. SOLU-MEDROL [Concomitant]
  4. AVONEX [Suspect]
     Route: 030
     Dates: start: 20010624, end: 20110518

REACTIONS (2)
  - NEEDLE TRACK MARKS [None]
  - DEPRESSION [None]
